FAERS Safety Report 17415208 (Version 1)
Quarter: 2020Q1

REPORT INFORMATION
  Report Type: Report from Study
  Country: IT (occurrence: IT)
  Receive Date: 20200213
  Receipt Date: 20200213
  Transmission Date: 20200409
  Serious: Yes (Other)
  Sender: FDA-Public Use
  Company Number: IT-PFIZER INC-2020061829

PATIENT
  Age: 73 Year
  Sex: Male
  Weight: 82 kg

DRUGS (2)
  1. ABRAXANE [Suspect]
     Active Substance: PACLITAXEL
     Indication: PANCREATIC NEOPLASM
     Dosage: 125 MG/M2, WEEKLY
     Route: 042
     Dates: start: 20190809
  2. GEMCITABINE HYDROCHLORIDE. [Suspect]
     Active Substance: GEMCITABINE HYDROCHLORIDE
     Indication: PANCREATIC NEOPLASM
     Dosage: 1000 MG/M2, WEEKLY
     Route: 042
     Dates: start: 20190809

REACTIONS (2)
  - Neurotoxicity [Recovered/Resolved]
  - Anaemia [Recovered/Resolved]

NARRATIVE: CASE EVENT DATE: 20191119
